FAERS Safety Report 7649944-8 (Version None)
Quarter: 2011Q3

REPORT INFORMATION
  Report Type: 
  Country: None (occurrence: None)
  Receive Date: 20110802
  Receipt Date: 20110728
  Transmission Date: 20111222
  Serious: Yes (Hospitalization)
  Sender: FDA-Public Use
  Company Number: KR-BRISTOL-MYERS SQUIBB COMPANY-15930555

PATIENT
  Age: 16 Year

DRUGS (1)
  1. BARACLUDE [Suspect]

REACTIONS (1)
  - LIVER DISORDER [None]
